FAERS Safety Report 8789558 (Version 1)
Quarter: 2012Q4

REPORT INFORMATION
  Report Type: Spontaneous
  Country: IN (occurrence: None)
  Receive Date: 20120905
  Receipt Date: 20120905
  Transmission Date: 20130627
  Serious: Yes (Other)
  Sender: FDA-Public Use
  Company Number: 2012GMK002808

PATIENT
  Age: 60 Year
  Sex: Male
  Weight: 119 kg

DRUGS (4)
  1. METFORMIN [Suspect]
     Indication: DIABETES MELLITUS
     Dosage: depending on blood glucose level
  2. METFORMIN [Suspect]
     Indication: DIABETES MELLITUS
  3. GLICLAZIDE (GLICLAZIDE) [Concomitant]
  4. RAMIPRIL (RAMIPRIL) [Concomitant]

REACTIONS (4)
  - Vitamin B12 deficiency [None]
  - Lethargy [None]
  - Abnormal behaviour [None]
  - Neuropathy peripheral [None]
